FAERS Safety Report 4562803-2 (Version None)
Quarter: 2005Q1

REPORT INFORMATION
  Report Type: 
  Country: None (occurrence: None)
  Receive Date: 20050127
  Receipt Date: 20050119
  Transmission Date: 20050727
  Serious: Yes (Other)
  Sender: FDA-Public Use
  Company Number: US-GLAXOSMITHKLINE-A0541336A

PATIENT
  Sex: Female

DRUGS (2)
  1. PAXIL [Suspect]
     Indication: GENERALISED ANXIETY DISORDER
     Dosage: 20MG PER DAY
     Route: 048
  2. PROMETRIUM [Suspect]
     Indication: UTERINE LEIOMYOMA

REACTIONS (6)
  - DRUG INTERACTION [None]
  - MANIA [None]
  - PARAESTHESIA [None]
  - PHOTOPSIA [None]
  - SUICIDAL IDEATION [None]
  - TREMOR [None]
